FAERS Safety Report 7109653-0 (Version None)
Quarter: 2010Q4

REPORT INFORMATION
  Report Type: 
  Country: None (occurrence: None)
  Receive Date: 20101115
  Receipt Date: 20101115
  Transmission Date: 20110411
  Serious: Yes (Life-Threatening, Hospitalization, Disabling, Other)
  Sender: FDA-Public Use
  Company Number: None

PATIENT
  Age: 7 Month
  Sex: Male
  Weight: 8.1647 kg

DRUGS (1)
  1. HYLAND'S TEETHING TABLETS  HYLAND'S [Suspect]
     Indication: TEETHING
     Dosage: 3 TABLETS 4 TIMES DAILY
     Dates: start: 20100726, end: 20101028

REACTIONS (7)
  - AGITATION [None]
  - CONVULSION [None]
  - DYSPNOEA [None]
  - HERBAL TOXICITY [None]
  - HYPERSOMNIA [None]
  - LETHARGY [None]
  - MUSCULAR WEAKNESS [None]
